FAERS Safety Report 14410856 (Version 4)
Quarter: 2018Q3

REPORT INFORMATION
  Report Type: Spontaneous
  Country: CA (occurrence: CA)
  Receive Date: 20180119
  Receipt Date: 20180816
  Transmission Date: 20181010
  Serious: Yes (Other)
  Sender: FDA-Public Use
  Company Number: CA-CELLTRION INC.-2017CA013711

PATIENT

DRUGS (12)
  1. INFLECTRA [Suspect]
     Active Substance: INFLIXIMAB-DYYB
     Dosage: 300MG, CYCLIC EVERY 4 WEEKS
     Route: 042
  2. INFLECTRA [Suspect]
     Active Substance: INFLIXIMAB-DYYB
     Dosage: 600 MG, CYCLIC EVERY 6 WEEKS, THEN EVERY 8 WEEKS
     Route: 042
     Dates: start: 20171115, end: 20171115
  3. INFLECTRA [Suspect]
     Active Substance: INFLIXIMAB-DYYB
     Dosage: 600 MG, CYCLIC EVERY 4 WEEKS
     Route: 042
     Dates: start: 20171213
  4. INFLECTRA [Suspect]
     Active Substance: INFLIXIMAB-DYYB
     Dosage: 600 MG, CYCLIC EVERY 4 WEEKS
     Route: 042
     Dates: start: 20180501
  5. INFLECTRA [Suspect]
     Active Substance: INFLIXIMAB-DYYB
     Dosage: 600 MG, CYCLIC EVERY 4 WEEKS
     Route: 042
     Dates: start: 20180529
  6. PREDNISONE. [Concomitant]
     Active Substance: PREDNISONE
     Dosage: 40 MG
     Route: 065
     Dates: start: 20170930
  7. INFLECTRA [Suspect]
     Active Substance: INFLIXIMAB-DYYB
     Dosage: 600 MG, CYCLIC EVERY 4 WEEKS
     Route: 042
     Dates: start: 20180724
  8. PROFERRIN [Concomitant]
     Dosage: 11 MG, DAILY
     Route: 065
     Dates: start: 20170930
  9. INFLECTRA [Suspect]
     Active Substance: INFLIXIMAB-DYYB
     Indication: COLITIS ULCERATIVE
     Dosage: 500 MG, CYCLIC, 0,2,6 WEEKS FOLLOWED BY MAINTENANCE EVERY 8WEEKS
     Route: 042
     Dates: start: 20171006, end: 20171020
  10. INFLECTRA [Suspect]
     Active Substance: INFLIXIMAB-DYYB
     Dosage: 600 MG, CYCLIC EVERY 4 WEEKS
     Route: 042
     Dates: start: 20180109
  11. IMURAN [Concomitant]
     Active Substance: AZATHIOPRINE
     Dosage: 50 MG
     Route: 065
     Dates: start: 20170930
  12. INFLECTRA [Suspect]
     Active Substance: INFLIXIMAB-DYYB
     Dosage: 600 MG, CYCLIC EVERY 4 WEEKS
     Route: 042
     Dates: start: 20180109

REACTIONS (12)
  - Diarrhoea [Not Recovered/Not Resolved]
  - Drug ineffective [Unknown]
  - Influenza like illness [Unknown]
  - Headache [Not Recovered/Not Resolved]
  - Condition aggravated [Unknown]
  - Product use issue [Unknown]
  - Abdominal discomfort [Unknown]
  - Haematochezia [Not Recovered/Not Resolved]
  - Food intolerance [Unknown]
  - Nausea [Unknown]
  - Haemorrhage [Unknown]
  - Product use issue [Unknown]

NARRATIVE: CASE EVENT DATE: 201712
